FAERS Safety Report 5367481-0 (Version None)
Quarter: 2007Q2

REPORT INFORMATION
  Report Type: 
  Country: None (occurrence: None)
  Receive Date: 20070620
  Receipt Date: 20070620
  Transmission Date: 20071010
  Serious: Yes (Hospitalization)
  Sender: FDA-Public Use
  Company Number: None

PATIENT
  Sex: Male
  Weight: 76.3 kg

DRUGS (6)
  1. BEVACIZUMAB 7.5MG/KG [Suspect]
     Indication: COLON CANCER METASTATIC
     Dosage: 575 MG Q21D IV
     Route: 042
     Dates: start: 20070611
  2. SYNTHROID [Concomitant]
  3. METOPROLOL SUCCINATE [Concomitant]
  4. PRILOSEC [Concomitant]
  5. COMPAZINE [Concomitant]
  6. AMBIEN [Concomitant]

REACTIONS (7)
  - APHASIA [None]
  - CLUMSINESS [None]
  - FACIAL PALSY [None]
  - INFARCTION [None]
  - ISCHAEMIA [None]
  - NERVOUS SYSTEM DISORDER [None]
  - SYNCOPE [None]
